FAERS Safety Report 5592714-5 (Version None)
Quarter: 2007Q4

REPORT INFORMATION
  Report Type: 
  Country: None (occurrence: None)
  Receive Date: 20071217
  Receipt Date: 20071016
  Transmission Date: 20080405
  Serious: No
  Sender: FDA-Public Use
  Company Number: BDI-010365

PATIENT
  Age: 86 Year
  Sex: Male
  Weight: 77 kg

DRUGS (3)
  1. MULTIHANCE [Suspect]
     Indication: CONVULSION
     Dosage: 15 ML ONCE IV
     Route: 042
     Dates: start: 20071015, end: 20071015
  2. MULTIHANCE [Suspect]
     Indication: DEMENTIA
     Dosage: 15 ML ONCE IV
     Route: 042
     Dates: start: 20071015, end: 20071015
  3. MULTIHANCE [Suspect]
     Indication: NUCLEAR MAGNETIC RESONANCE IMAGING BRAIN
     Dosage: 15 ML ONCE IV
     Route: 042
     Dates: start: 20071015, end: 20071015

REACTIONS (1)
  - HYPERSENSITIVITY [None]
